FAERS Safety Report 10387518 (Version 1)
Quarter: 2014Q3

REPORT INFORMATION
  Report Type: Spontaneous
  Country: US (occurrence: US)
  Receive Date: 20140815
  Receipt Date: 20140815
  Transmission Date: 20150326
  Serious: No
  Sender: FDA-Public Use
  Company Number: US-TARO-2013P1021775

PATIENT
  Sex: Male

DRUGS (2)
  1. LAMISIL [Suspect]
     Active Substance: TERBINAFINE HYDROCHLORIDE
     Dates: start: 20131124
  2. LAMISIL [Suspect]
     Active Substance: TERBINAFINE HYDROCHLORIDE
     Dosage: BID
     Route: 061
     Dates: start: 20131124

REACTIONS (2)
  - Anxiety [Unknown]
  - Tinea infection [Not Recovered/Not Resolved]

NARRATIVE: CASE EVENT DATE: 20131127
